FAERS Safety Report 5680009-0 (Version None)
Quarter: 2008Q1

REPORT INFORMATION
  Report Type: 
  Country: None (occurrence: None)
  Receive Date: 20080325
  Receipt Date: 20080325
  Transmission Date: 20080703
  Serious: Yes (Other)
  Sender: FDA-Public Use
  Company Number: None

PATIENT
  Age: 46 Year
  Sex: Female
  Weight: 69.8539 kg

DRUGS (2)
  1. FLUOXETINE [Suspect]
     Indication: MAJOR DEPRESSION
     Dosage: 80MG DAILY ORAL
     Route: 048
     Dates: start: 20080217
  2. FLUOXETINE [Suspect]
     Indication: OBSESSIVE-COMPULSIVE DISORDER
     Dosage: 80MG DAILY ORAL
     Route: 048
     Dates: start: 20080217

REACTIONS (5)
  - ANGER [None]
  - DEPRESSED MOOD [None]
  - FEELING ABNORMAL [None]
  - IRRITABILITY [None]
  - LACRIMATION INCREASED [None]
